FAERS Safety Report 5917389-4 (Version None)
Quarter: 2008Q4

REPORT INFORMATION
  Report Type: 
  Country: None (occurrence: None)
  Receive Date: 20081014
  Receipt Date: 20081009
  Transmission Date: 20090506
  Serious: Yes (Other)
  Sender: FDA-Public Use
  Company Number: A0751116A

PATIENT
  Sex: Female

DRUGS (7)
  1. SEREVENT [Suspect]
     Indication: CHRONIC OBSTRUCTIVE PULMONARY DISEASE
     Dosage: 1PUFF TWICE PER DAY
     Route: 055
     Dates: start: 20080701
  2. ADVAIR DISKUS 100/50 [Suspect]
     Indication: CHRONIC OBSTRUCTIVE PULMONARY DISEASE
     Dosage: 1PUFF TWICE PER DAY
     Route: 055
     Dates: start: 20050101, end: 20080701
  3. FLUOXETINE [Concomitant]
  4. LORATADINE [Concomitant]
  5. HYOSCYAMINE [Concomitant]
  6. MYLANTA [Concomitant]
  7. GAS X [Concomitant]

REACTIONS (6)
  - ABDOMINAL PAIN [None]
  - EYE PAIN [None]
  - FLATULENCE [None]
  - GASTRITIS [None]
  - INFECTION [None]
  - VISUAL ACUITY REDUCED [None]
